FAERS Safety Report 8551517-X (Version None)
Quarter: 2012Q3

REPORT INFORMATION
  Report Type: 
  Country: None (occurrence: None)
  Receive Date: 20120730
  Receipt Date: 20120717
  Transmission Date: 20120928
  Serious: Yes (Hospitalization)
  Sender: FDA-Public Use
  Company Number: FR-ROCHE-1074261

PATIENT
  Weight: 80 kg

DRUGS (12)
  1. VALSARTAN [Concomitant]
  2. ZELBORAF [Suspect]
     Route: 048
     Dates: end: 20120522
  3. METFORMIN HCL [Concomitant]
  4. NEURONTIN [Concomitant]
  5. ZELBORAF [Suspect]
     Indication: MALIGNANT MELANOMA
     Route: 048
     Dates: start: 20120511
  6. ASPEGIC 1000 [Concomitant]
     Dosage: 75
  7. FUROSEMIDE [Concomitant]
  8. XANAX [Concomitant]
  9. SIMVASTATIN [Concomitant]
  10. PREVISCAN [Concomitant]
  11. SITAGLIPTIN PHOSPHATE [Concomitant]
  12. AMLODIPINE [Concomitant]

REACTIONS (4)
  - PHOTOSENSITIVITY REACTION [None]
  - EOSINOPHILIA [None]
  - RENAL FAILURE ACUTE [None]
  - DRUG ERUPTION [None]
